FAERS Safety Report 6944979-2 (Version None)
Quarter: 2010Q3

REPORT INFORMATION
  Report Type: 
  Country: None (occurrence: None)
  Receive Date: 20100827
  Receipt Date: 20100824
  Transmission Date: 20110219
  Serious: Yes (Other)
  Sender: FDA-Public Use
  Company Number: US-JNJFOC-20100406434

PATIENT
  Sex: Female
  Weight: 101.15 kg

DRUGS (13)
  1. REMICADE [Suspect]
     Indication: COLITIS ULCERATIVE
     Dosage: 4TH INFUSION
     Route: 042
  2. REMICADE [Suspect]
     Route: 042
  3. REMICADE [Suspect]
     Route: 042
  4. REMICADE [Suspect]
     Route: 042
  5. BENADRYL [Concomitant]
     Indication: PREMEDICATION
  6. GABAPENTIN [Concomitant]
     Indication: FIBROMYALGIA
     Route: 048
  7. TRAMADOL HCL [Concomitant]
     Indication: FIBROMYALGIA
     Route: 048
  8. CITALOPRAM [Concomitant]
     Route: 048
  9. GLIMEPIRIDE [Concomitant]
     Route: 048
  10. HUMULIN INSULIN N [Concomitant]
     Dosage: SLIDING SCALE
     Route: 058
  11. HUMALOG [Concomitant]
     Dosage: SLIDING SCALE
     Route: 058
  12. LISINOPRIL [Concomitant]
     Route: 048
  13. ACETAMINOPHEN [Concomitant]
     Indication: PREMEDICATION

REACTIONS (14)
  - BLOOD PRESSURE INCREASED [None]
  - DIZZINESS [None]
  - DYSPHAGIA [None]
  - DYSPHONIA [None]
  - DYSPNOEA [None]
  - EAR PAIN [None]
  - ERYTHEMA [None]
  - HEADACHE [None]
  - INFUSION RELATED REACTION [None]
  - NAUSEA [None]
  - OROPHARYNGEAL PAIN [None]
  - PAIN [None]
  - SKIN BURNING SENSATION [None]
  - VOMITING [None]
